FAERS Safety Report 4786859-7 (Version None)
Quarter: 2005Q3

REPORT INFORMATION
  Report Type: 
  Country: None (occurrence: None)
  Receive Date: 20050930
  Receipt Date: 20050922
  Transmission Date: 20060218
  Serious: Yes (Death)
  Sender: FDA-Public Use
  Company Number: 163-20785-05090308

PATIENT
  Age: 68 Year
  Sex: Female

DRUGS (2)
  1. THALOMID [Suspect]
     Indication: MULTIPLE MYELOMA
     Dosage: 100MG TO 150MG DAILY, ORAL
     Route: 048
     Dates: start: 20050308, end: 20050101
  2. THALOMID [Suspect]

REACTIONS (1)
  - LEUKAEMIA [None]
